FAERS Safety Report 21462501 (Version 1)
Quarter: 2022Q4

REPORT INFORMATION
  Report Type: Spontaneous
  Country: US (occurrence: None)
  Receive Date: 20221014
  Receipt Date: 20221014
  Transmission Date: 20230112
  Serious: Yes (Hospitalization)
  Sender: FDA-Public Use
  Company Number: None

PATIENT
  Sex: Female

DRUGS (2)
  1. AMBRISENTAN [Suspect]
     Active Substance: AMBRISENTAN
     Indication: Pulmonary arterial hypertension
     Dosage: FREQUENCY : DAILY;?
     Route: 048
     Dates: start: 20220217
  2. TADALAFIL [Suspect]
     Active Substance: TADALAFIL
     Indication: Pulmonary arterial hypertension
     Dosage: FREQUENCY : DAILY;?
     Route: 048
     Dates: start: 20220208

REACTIONS (10)
  - Malaise [None]
  - Bladder cancer [None]
  - Syncope [None]
  - Vomiting [None]
  - Hypotension [None]
  - Incorrect dose administered [None]
  - Chest pain [None]
  - Diarrhoea [None]
  - Nausea [None]
  - Oxygen saturation decreased [None]
